FAERS Safety Report 24412179 (Version 1)
Quarter: 2024Q4

REPORT INFORMATION
  Report Type: Spontaneous
  Country: JP (occurrence: JP)
  Receive Date: 20241008
  Receipt Date: 20241008
  Transmission Date: 20250115
  Serious: Yes (Other)
  Sender: BRISTOL MYERS SQUIBB
  Company Number: JP-BRISTOL-MYERS SQUIBB COMPANY-2024-148125

PATIENT
  Age: 72 Year
  Sex: Male

DRUGS (5)
  1. YERVOY [Suspect]
     Active Substance: IPILIMUMAB
     Indication: Colon cancer
     Route: 041
     Dates: start: 202104, end: 202106
  2. OPDIVO [Suspect]
     Active Substance: NIVOLUMAB
     Indication: Colon cancer
     Route: 041
     Dates: start: 202104, end: 202106
  3. CETUXIMAB [Suspect]
     Active Substance: CETUXIMAB
     Indication: Colon cancer
     Dates: start: 202106, end: 202107
  4. MEKTOVI [Suspect]
     Active Substance: BINIMETINIB
     Indication: Colon cancer
     Dates: start: 202106, end: 202107
  5. BRAFTOVI [Suspect]
     Active Substance: ENCORAFENIB
     Indication: Colon cancer
     Dates: start: 202106, end: 202107

REACTIONS (6)
  - Scintillating scotoma [Recovered/Resolved]
  - Acne [Unknown]
  - Decreased appetite [Unknown]
  - Malaise [Unknown]
  - General physical health deterioration [Unknown]
  - Therapeutic response decreased [Unknown]

NARRATIVE: CASE EVENT DATE: 20210601
